FAERS Safety Report 25428616 (Version 1)
Quarter: 2025Q2

REPORT INFORMATION
  Report Type: Other
  Country: FR (occurrence: FR)
  Receive Date: 20250612
  Receipt Date: 20250612
  Transmission Date: 20250717
  Serious: Yes (Other)
  Sender: Atnahs Healthcare
  Company Number: None

PATIENT
  Age: 47 Year
  Sex: Male

DRUGS (5)
  1. CYAMEMAZINE [Suspect]
     Active Substance: CYAMEMAZINE
     Indication: Depression
     Dosage: 50 MG, 1X/DAY
     Route: 048
     Dates: start: 20221115, end: 20250420
  2. DIAZEPAM [Suspect]
     Active Substance: DIAZEPAM
     Indication: Anxiety
     Dosage: 15 MG, 1X/DAY
     Route: 048
     Dates: start: 20231130
  3. PAROXETINE HYDROCHLORIDE [Suspect]
     Active Substance: PAROXETINE HYDROCHLORIDE
     Indication: Depression
     Dosage: 60 MG, 1X/DAY
     Route: 048
     Dates: start: 20231130
  4. QUETIAPINE [Suspect]
     Active Substance: QUETIAPINE
     Indication: Depression
     Dosage: 50 MG, 1X/DAY
     Route: 048
     Dates: start: 20240223
  5. ZOPICLONE [Suspect]
     Active Substance: ZOPICLONE
     Indication: Insomnia
     Dosage: 7.5 MG, 1X/DAY
     Route: 048
     Dates: start: 20240223

REACTIONS (1)
  - Enuresis [Recovering/Resolving]

NARRATIVE: CASE EVENT DATE: 20240515
